FAERS Safety Report 6383786-9 (Version None)
Quarter: 2009Q4

REPORT INFORMATION
  Report Type: 
  Country: None (occurrence: None)
  Receive Date: 20091001
  Receipt Date: 20090925
  Transmission Date: 20100525
  Serious: Yes (Hospitalization, Other)
  Sender: FDA-Public Use
  Company Number: BR-JNJFOC-20090908060

PATIENT
  Age: 7 Year
  Sex: Male
  Weight: 23 kg

DRUGS (1)
  1. RISPERDAL [Suspect]
     Indication: BIPOLAR DISORDER
     Route: 065

REACTIONS (6)
  - ACCIDENTAL EXPOSURE [None]
  - ASTHENIA [None]
  - MEDICATION ERROR [None]
  - SKIN DISCOLOURATION [None]
  - SWELLING FACE [None]
  - URINARY RETENTION [None]
